FAERS Safety Report 24101510 (Version 2)
Quarter: 2025Q2

REPORT INFORMATION
  Report Type: Spontaneous
  Country: AT (occurrence: AT)
  Receive Date: 20240717
  Receipt Date: 20250616
  Transmission Date: 20250716
  Serious: Yes (Life-Threatening, Hospitalization, Other)
  Sender: SANDOZ
  Company Number: AT-CELLTRION INC.-2024AT016043

PATIENT
  Age: 29 Year
  Sex: Male
  Weight: 88.2 kg

DRUGS (18)
  1. CYCLOPHOSPHAMIDE [Suspect]
     Active Substance: CYCLOPHOSPHAMIDE
     Indication: Diffuse large B-cell lymphoma
     Route: 042
     Dates: start: 20220202
  2. DOXORUBICIN [Suspect]
     Active Substance: DOXORUBICIN
     Indication: Diffuse large B-cell lymphoma
     Route: 065
     Dates: start: 20220202
  3. LENALIDOMIDE [Suspect]
     Active Substance: LENALIDOMIDE
     Route: 048
     Dates: start: 20220202
  4. LENALIDOMIDE [Suspect]
     Active Substance: LENALIDOMIDE
     Indication: Diffuse large B-cell lymphoma
     Route: 048
  5. PREDNISOLONE [Suspect]
     Active Substance: PREDNISOLONE
     Indication: Diffuse large B-cell lymphoma
     Route: 065
     Dates: start: 20220202
  6. RITUXIMAB [Suspect]
     Active Substance: RITUXIMAB
     Indication: Diffuse large B-cell lymphoma
     Route: 065
     Dates: start: 20220202
  7. RITUXIMAB [Suspect]
     Active Substance: RITUXIMAB
     Route: 065
     Dates: start: 20220608
  8. TAFASITAMAB [Suspect]
     Active Substance: TAFASITAMAB
     Indication: Diffuse large B-cell lymphoma
     Route: 065
     Dates: start: 20220608
  9. TAFASITAMAB [Suspect]
     Active Substance: TAFASITAMAB
     Route: 065
     Dates: start: 20220202, end: 20220608
  10. VINCRISTINE [Suspect]
     Active Substance: VINCRISTINE
     Indication: Diffuse large B-cell lymphoma
     Route: 042
     Dates: start: 20220202
  11. BROTIZOLAM [Concomitant]
     Active Substance: BROTIZOLAM
     Indication: Insomnia
     Route: 048
     Dates: start: 20220617, end: 20220617
  12. Lidaprim [Concomitant]
     Indication: Prophylaxis
     Route: 048
     Dates: start: 20220204
  13. Lidaprim [Concomitant]
     Route: 048
  14. LOVENOX [Concomitant]
     Active Substance: ENOXAPARIN SODIUM
     Indication: Prophylaxis
     Route: 058
     Dates: start: 20220617, end: 20220621
  15. PANTOPRAZOLE SODIUM [Concomitant]
     Active Substance: PANTOPRAZOLE SODIUM
     Indication: Product used for unknown indication
     Route: 048
     Dates: start: 20220407
  16. PANTOPRAZOLE SODIUM [Concomitant]
     Active Substance: PANTOPRAZOLE SODIUM
     Route: 048
     Dates: start: 20220202
  17. ASPIRIN [Concomitant]
     Active Substance: ASPIRIN
     Indication: Product used for unknown indication
     Route: 048
     Dates: start: 20220203
  18. VALACYCLOVIR HYDROCHLORIDE [Concomitant]
     Active Substance: VALACYCLOVIR HYDROCHLORIDE
     Indication: Product used for unknown indication
     Route: 048
     Dates: start: 20220203

REACTIONS (1)
  - Febrile neutropenia [Recovered/Resolved]

NARRATIVE: CASE EVENT DATE: 20220617
